FAERS Safety Report 6081644-0 (Version None)
Quarter: 2009Q1

REPORT INFORMATION
  Report Type: 
  Country: None (occurrence: None)
  Receive Date: 20090218
  Receipt Date: 20090206
  Transmission Date: 20090719
  Serious: Yes (Hospitalization)
  Sender: FDA-Public Use
  Company Number: AU-PFIZER INC-2009167075

PATIENT

DRUGS (3)
  1. IDARUBICIN HCL [Suspect]
     Indication: ACUTE MYELOID LEUKAEMIA
     Dosage: 18 MG; FOR 3 DAYS
     Route: 042
     Dates: start: 20081128, end: 20090121
  2. CYTARABINE [Suspect]
     Indication: ACUTE MYELOID LEUKAEMIA
     Dosage: 200 MG,  FOR 5 DAYS
     Route: 042
     Dates: start: 20081128, end: 20090123
  3. ETOPOSIDE [Suspect]
     Indication: ACUTE MYELOID LEUKAEMIA
     Dosage: 150 MG;FOR 5 DAYS
     Route: 042
     Dates: start: 20081128, end: 20090123

REACTIONS (1)
  - WOUND INFECTION [None]
